FAERS Safety Report 17033969 (Version 2)
Quarter: 2019Q4

REPORT INFORMATION
  Report Type: Report from Study
  Country: US (occurrence: US)
  Receive Date: 20191114
  Receipt Date: 20191127
  Transmission Date: 20200122
  Serious: Yes (Death, Hospitalization)
  Sender: FDA-Public Use
  Company Number: US-ACTELION-A-NJ2019-189859

PATIENT
  Age: 88 Year
  Sex: Female
  Weight: 57.14 kg

DRUGS (3)
  1. UPTRAVI [Suspect]
     Active Substance: SELEXIPAG
     Indication: PULMONARY HYPERTENSION
     Dosage: 400 MCG AND 600 MCG QD
     Route: 048
     Dates: start: 20160426, end: 20191104
  2. OPSUMIT [Suspect]
     Active Substance: MACITENTAN
     Indication: PULMONARY HYPERTENSION
     Dosage: 10 MG, QD
     Route: 048
  3. ADCIRCA [Concomitant]
     Active Substance: TADALAFIL

REACTIONS (10)
  - Peripheral swelling [Unknown]
  - Cellulitis [Unknown]
  - Infection [Unknown]
  - Chest pain [Not Recovered/Not Resolved]
  - Death [Fatal]
  - Dyspnoea exertional [Unknown]
  - Dyspnoea at rest [Unknown]
  - Hospice care [Unknown]
  - Palpitations [Not Recovered/Not Resolved]
  - Fatigue [Unknown]

NARRATIVE: CASE EVENT DATE: 20191104
